FAERS Safety Report 11628147 (Version 1)
Quarter: 2015Q4

REPORT INFORMATION
  Report Type: Spontaneous
  Country: FR (occurrence: FR)
  Receive Date: 20151014
  Receipt Date: 20151014
  Transmission Date: 20160304
  Serious: Yes (Hospitalization)
  Sender: FDA-Public Use
  Company Number: FR-ACTAVIS-2015-21537

PATIENT
  Age: 47 Year
  Sex: Male

DRUGS (3)
  1. IBUPROFEN ACTAVIS [Suspect]
     Active Substance: IBUPROFEN
     Indication: PHARYNGITIS
     Dosage: 400 MG, TID
     Route: 048
     Dates: start: 20141014, end: 20141014
  2. SURGAM [Suspect]
     Active Substance: TIAPROFENIC ACID
     Indication: PHARYNGITIS
     Dosage: 200 MG, TID
     Route: 048
     Dates: start: 20141019, end: 20141019
  3. AUGMENTIN [Suspect]
     Active Substance: AMOXICILLIN\CLAVULANATE POTASSIUM
     Indication: PHARYNGITIS
     Dosage: 1 G, TID
     Route: 048
     Dates: start: 20141019, end: 20141024

REACTIONS (1)
  - Peritonsillar abscess [Recovered/Resolved]

NARRATIVE: CASE EVENT DATE: 20141024
